FAERS Safety Report 9982093 (Version 1)
Quarter: 2014Q1

REPORT INFORMATION
  Report Type: Spontaneous
  Country: US (occurrence: None)
  Receive Date: 20140306
  Receipt Date: 20140306
  Transmission Date: 20141002
  Serious: Yes (Hospitalization)
  Sender: FDA-Public Use
  Company Number: None

PATIENT
  Age: 79 Year
  Sex: Male
  Weight: 93.8 kg

DRUGS (2)
  1. ASPIRIN [Suspect]
     Indication: STENT PLACEMENT
     Route: 048
     Dates: start: 20120213
  2. CLOPIDOGREL [Suspect]
     Indication: STENT PLACEMENT
     Route: 048
     Dates: start: 20070821

REACTIONS (1)
  - Gastrointestinal haemorrhage [None]
